FAERS Safety Report 4611997-9 (Version None)
Quarter: 2005Q1

REPORT INFORMATION
  Report Type: 
  Country: None (occurrence: None)
  Receive Date: 20050308
  Receipt Date: 20050107
  Transmission Date: 20050727
  Serious: Yes (Other)
  Sender: FDA-Public Use
  Company Number: 2005UW00325

PATIENT
  Age: 77 Year
  Sex: Male
  Weight: 99.79 kg

DRUGS (2)
  1. CRESTOR [Suspect]
     Indication: HYPERCHOLESTEROLAEMIA
     Dosage: 10 MG PO
     Route: 048
  2. DARVOCET-N 100 [Concomitant]

REACTIONS (1)
  - POLLAKIURIA [None]
